FAERS Safety Report 8323047-1 (Version None)
Quarter: 2012Q2

REPORT INFORMATION
  Report Type: 
  Country: None (occurrence: None)
  Receive Date: 20120430
  Receipt Date: 20120423
  Transmission Date: 20120825
  Serious: Yes (Hospitalization)
  Sender: FDA-Public Use
  Company Number: DE-ABBOTT-12P-062-0928475-00

PATIENT
  Age: 54 Year
  Sex: Male
  Weight: 130 kg

DRUGS (1)
  1. HUMIRA [Suspect]
     Indication: CROHN'S DISEASE
     Route: 058
     Dates: start: 20110829, end: 20111201

REACTIONS (4)
  - NAUSEA [None]
  - CHILLS [None]
  - LIPOMA [None]
  - VOMITING [None]
